FAERS Safety Report 12352372 (Version 2)
Quarter: 2016Q2

REPORT INFORMATION
  Report Type: Spontaneous
  Country: US (occurrence: US)
  Receive Date: 20160510
  Receipt Date: 20160512
  Transmission Date: 20160815
  Serious: Yes (Other)
  Sender: FDA-Public Use
  Company Number: US-JNJFOC-20160500827

PATIENT
  Sex: Female
  Weight: 43.09 kg

DRUGS (7)
  1. INVEGA SUSTENNA [Suspect]
     Active Substance: PALIPERIDONE PALMITATE
     Indication: SCHIZOPHRENIFORM DISORDER
     Route: 030
     Dates: end: 2015
  2. INVEGA SUSTENNA [Suspect]
     Active Substance: PALIPERIDONE PALMITATE
     Indication: SCHIZOPHRENIFORM DISORDER
     Route: 030
     Dates: start: 2016
  3. INVEGA SUSTENNA [Suspect]
     Active Substance: PALIPERIDONE PALMITATE
     Indication: SCHIZOPHRENIFORM DISORDER
     Route: 030
     Dates: end: 2014
  4. INVEGA SUSTENNA [Suspect]
     Active Substance: PALIPERIDONE PALMITATE
     Indication: SCHIZOPHRENIFORM DISORDER
     Route: 030
     Dates: start: 2013, end: 2013
  5. INVEGA SUSTENNA [Suspect]
     Active Substance: PALIPERIDONE PALMITATE
     Indication: SCHIZOPHRENIFORM DISORDER
     Route: 030
     Dates: end: 2016
  6. INVEGA SUSTENNA [Suspect]
     Active Substance: PALIPERIDONE PALMITATE
     Indication: SCHIZOPHRENIFORM DISORDER
     Route: 030
  7. INVEGA SUSTENNA [Suspect]
     Active Substance: PALIPERIDONE PALMITATE
     Indication: SCHIZOPHRENIFORM DISORDER
     Dosage: FEB-2013/MAR-2013
     Route: 030
     Dates: start: 2013, end: 2013

REACTIONS (7)
  - Anxiety [Unknown]
  - Mental impairment [Recovering/Resolving]
  - Aphasia [Recovering/Resolving]
  - Tinnitus [Not Recovered/Not Resolved]
  - Loss of consciousness [Not Recovered/Not Resolved]
  - Tardive dyskinesia [Recovered/Resolved]
  - Blood prolactin increased [Not Recovered/Not Resolved]

NARRATIVE: CASE EVENT DATE: 2013
